FAERS Safety Report 10991058 (Version 1)
Quarter: 2015Q2

REPORT INFORMATION
  Report Type: Spontaneous
  Country: JP (occurrence: JP)
  Receive Date: 20150406
  Receipt Date: 20150406
  Transmission Date: 20150821
  Serious: Yes (Death, Hospitalization)
  Sender: FDA-Public Use
  Company Number: JP-BAYER-2014-129683

PATIENT
  Age: 73 Year
  Sex: Male
  Weight: 51 kg

DRUGS (11)
  1. GLYCYRON [GLYCYRRHIZIC ACID] [Concomitant]
     Indication: HEPATITIS
     Dosage: DAILY DOSE 6 DF
     Route: 048
     Dates: start: 20120820, end: 20140912
  2. CALSLOT [Concomitant]
     Active Substance: MANIDIPINE HYDROCHLORIDE
     Indication: HYPERTENSION
     Dosage: DAILY DOSE 20 MG
     Route: 048
     Dates: start: 20120820, end: 20140912
  3. URSO [Concomitant]
     Active Substance: URSODIOL
     Indication: HEPATITIS
     Dosage: DAILY DOSE 900 MG
     Route: 048
     Dates: start: 20120820, end: 20140912
  4. PROHEPARUM [Concomitant]
     Active Substance: CHOLINE BITARTRATE\CYSTEINE\INOSITOL\MAMMAL LIVER
     Indication: HEPATITIS
     Dosage: DAILY DOSE 6 DF
     Route: 048
     Dates: start: 20120820, end: 20140912
  5. LASIX [Concomitant]
     Active Substance: FUROSEMIDE
     Indication: OEDEMA
     Dosage: DAILY DOSE 20 MG
     Route: 048
     Dates: start: 20120820, end: 20140912
  6. FAMOTIDINE. [Concomitant]
     Active Substance: FAMOTIDINE
     Indication: GASTRITIS
     Dosage: DAILY DOSE 40 MG
     Route: 048
     Dates: start: 20120820, end: 20140912
  7. IA-CALL [Concomitant]
     Active Substance: CISPLATIN
     Dosage: DAILY DOSE 100 MG
     Route: 050
     Dates: start: 20140618
  8. SUCRALFAT [Concomitant]
     Indication: GASTRITIS
     Dosage: DAILY DOSE 2.7 G
     Route: 048
     Dates: start: 20120820, end: 20140912
  9. NEXAVAR [Suspect]
     Active Substance: SORAFENIB
     Indication: HEPATOCELLULAR CARCINOMA
     Dosage: 600 MG, DAILY
     Route: 048
     Dates: start: 20140801, end: 20140815
  10. NEXAVAR [Suspect]
     Active Substance: SORAFENIB
     Indication: HEPATOCELLULAR CARCINOMA
     Dosage: DAILY DOSE 400 MG
     Route: 048
     Dates: start: 20140717, end: 20140731
  11. ALDACTONE [Concomitant]
     Active Substance: SPIRONOLACTONE
     Indication: OEDEMA
     Dosage: DAILY DOSE 25 MG
     Route: 048
     Dates: start: 20120820, end: 20140912

REACTIONS (3)
  - Dysgeusia [Unknown]
  - Bone marrow failure [Recovered/Resolved]
  - Hepatocellular carcinoma [Fatal]

NARRATIVE: CASE EVENT DATE: 20140813
